FAERS Safety Report 5442004-6 (Version None)
Quarter: 2007Q3

REPORT INFORMATION
  Report Type: 
  Country: None (occurrence: None)
  Receive Date: 20070904
  Receipt Date: 20070830
  Transmission Date: 20080115
  Serious: Yes (Other)
  Sender: FDA-Public Use
  Company Number: D0054418A

PATIENT
  Sex: Female

DRUGS (4)
  1. VIANI FORTE [Suspect]
     Dosage: 1PUFF THREE TIMES PER DAY
     Route: 055
     Dates: start: 20060101
  2. SINGULAIR [Suspect]
     Route: 048
     Dates: start: 20060101
  3. BERODUAL [Suspect]
     Route: 055
     Dates: start: 20060101
  4. XOLAIR [Suspect]
     Route: 042
     Dates: start: 20070801

REACTIONS (6)
  - ASTHMA [None]
  - CHEST DISCOMFORT [None]
  - DRUG INEFFECTIVE [None]
  - DYSPHONIA [None]
  - INCREASED UPPER AIRWAY SECRETION [None]
  - SPEECH DISORDER [None]
